FAERS Safety Report 5562766-7 (Version None)
Quarter: 2007Q4

REPORT INFORMATION
  Report Type: 
  Country: None (occurrence: None)
  Receive Date: 20071211
  Receipt Date: 20071211
  Transmission Date: 20080405
  Serious: Yes (Life-Threatening, Hospitalization)
  Sender: FDA-Public Use
  Company Number: None

PATIENT
  Age: 46 Year
  Sex: Female
  Weight: 65.7716 kg

DRUGS (4)
  1. AXERT [Suspect]
     Indication: MIGRAINE
     Dosage: 1 AT ONSET, 1 MORE ,    PRN  PO
     Route: 048
     Dates: start: 20010101, end: 20070616
  2. CYMBALTA [Suspect]
     Indication: DEPRESSION
     Dosage: 1 PILL  DAILY  PO
     Route: 048
     Dates: start: 20070210, end: 20070616
  3. NITROGLYCERIN [Suspect]
  4. ASPIRIN [Concomitant]

REACTIONS (7)
  - ANXIETY DISORDER [None]
  - CARDIOSPASM [None]
  - DRUG INTERACTION [None]
  - PAIN IN EXTREMITY [None]
  - PANIC ATTACK [None]
  - SEROTONIN SYNDROME [None]
  - SUICIDAL IDEATION [None]
